FAERS Safety Report 6101752-5 (Version None)
Quarter: 2009Q1

REPORT INFORMATION
  Report Type: 
  Country: None (occurrence: None)
  Receive Date: 20090304
  Receipt Date: 20090227
  Transmission Date: 20090719
  Serious: Yes (Other)
  Sender: FDA-Public Use
  Company Number: B0562175A

PATIENT
  Age: 59 Year
  Sex: Female

DRUGS (1)
  1. ZOVIRAX [Suspect]
     Indication: ENCEPHALITIS
     Route: 042

REACTIONS (4)
  - DERMATITIS BULLOUS [None]
  - EXTRAVASATION [None]
  - OEDEMA [None]
  - OEDEMA PERIPHERAL [None]
